FAERS Safety Report 20385817 (Version 1)
Quarter: 2022Q1

REPORT INFORMATION
  Report Type: Spontaneous
  Country: GB (occurrence: GB)
  Receive Date: 20220127
  Receipt Date: 20220127
  Transmission Date: 20220423
  Serious: Yes (Death)
  Sender: FDA-Public Use
  Company Number: GB-NOVARTISPH-NVSC2022GB017487

PATIENT
  Age: 41 Year
  Sex: Male

DRUGS (3)
  1. MYCOPHENOLATE SODIUM [Suspect]
     Active Substance: MYCOPHENOLATE SODIUM
     Indication: Product used for unknown indication
     Dosage: 360 MG
     Route: 065
  2. RAPAMUNE [Suspect]
     Active Substance: SIROLIMUS
     Indication: Product used for unknown indication
     Dosage: 1 MG
     Route: 065
  3. PREDNISOLONE [Suspect]
     Active Substance: PREDNISOLONE
     Indication: Product used for unknown indication
     Dosage: 5 MG
     Route: 065

REACTIONS (1)
  - Death [Fatal]
